FAERS Safety Report 10241843 (Version 1)
Quarter: 2014Q2

REPORT INFORMATION
  Report Type: Spontaneous
  Country: US (occurrence: US)
  Receive Date: 20140617
  Receipt Date: 20140617
  Transmission Date: 20141212
  Serious: Yes (Hospitalization)
  Sender: FDA-Public Use
  Company Number: US-GLAXOSMITHKLINE-A1076570A

PATIENT
  Age: 69 Year
  Sex: Female
  Weight: 48.2 kg

DRUGS (7)
  1. ADVAIR [Suspect]
     Indication: CHRONIC OBSTRUCTIVE PULMONARY DISEASE
     Dosage: 1PUFF TWICE PER DAY
     Route: 055
  2. UNSPECIFIED MEDICATION [Concomitant]
  3. OXYGEN [Concomitant]
  4. XANAX [Concomitant]
  5. BUSPIRONE [Concomitant]
  6. PREDNISONE [Concomitant]
  7. SPIRIVA [Concomitant]

REACTIONS (5)
  - Sepsis [Recovered/Resolved]
  - Pneumonia [Recovered/Resolved]
  - Malaise [Unknown]
  - Weight decreased [Recovering/Resolving]
  - Dyspnoea [Unknown]
